FAERS Safety Report 4727827-0 (Version None)
Quarter: 2005Q3

REPORT INFORMATION
  Report Type: 
  Country: None (occurrence: None)
  Receive Date: 20050728
  Receipt Date: 20041021
  Transmission Date: 20060218
  Serious: Yes (Hospitalization)
  Sender: FDA-Public Use
  Company Number: DE-MERCK-0410DEU00629

PATIENT
  Age: 69 Year
  Sex: Male
  Weight: 131 kg

DRUGS (16)
  1. VIOXX [Suspect]
     Indication: OSTEOARTHRITIS
     Route: 048
     Dates: start: 20000426, end: 20030101
  2. VIOXX [Suspect]
     Route: 048
     Dates: start: 20030825, end: 20040101
  3. VIOXX [Suspect]
     Route: 048
     Dates: start: 20030324, end: 20030501
  4. VIOXX [Suspect]
     Route: 048
     Dates: start: 20000426, end: 20030101
  5. VIOXX [Suspect]
     Route: 048
     Dates: start: 20030825, end: 20040101
  6. VIOXX [Suspect]
     Route: 048
     Dates: start: 20030324, end: 20030501
  7. VALDECOXIB [Concomitant]
     Indication: ARTHROPATHY
     Route: 048
     Dates: start: 20030602, end: 20030101
  8. VALDECOXIB [Concomitant]
     Route: 048
     Dates: start: 20040426, end: 20040101
  9. INSULIN GLARGINE [Concomitant]
     Indication: DIABETES MELLITUS
     Route: 065
     Dates: start: 20020101
  10. METFORMIN [Concomitant]
     Indication: DIABETES MELLITUS
     Route: 065
     Dates: start: 19990101
  11. GLYBURIDE [Concomitant]
     Indication: DIABETES MELLITUS
     Route: 048
     Dates: start: 19990101, end: 20030101
  12. SIMVASTATIN [Concomitant]
     Indication: HYPERCHOLESTEROLAEMIA
     Route: 048
     Dates: start: 20040101
  13. ACARBOSE [Concomitant]
     Indication: DIABETES MELLITUS
     Route: 048
     Dates: start: 20020101, end: 20030101
  14. ACARBOSE [Concomitant]
     Route: 048
     Dates: start: 20030101, end: 20040101
  15. ASPIRIN [Concomitant]
     Indication: CORONARY ARTERY DISEASE
     Route: 048
     Dates: start: 20021015
  16. RAMIPRIL [Concomitant]
     Indication: HYPERTENSION
     Route: 065
     Dates: start: 20020101, end: 20040101

REACTIONS (7)
  - BENIGN PROSTATIC HYPERPLASIA [None]
  - CORONARY ARTERY DISEASE [None]
  - EXERCISE TOLERANCE DECREASED [None]
  - GOITRE [None]
  - METABOLIC SYNDROME [None]
  - MYOCARDIAL INFARCTION [None]
  - OSTEOARTHRITIS [None]
